FAERS Safety Report 15906204 (Version 1)
Quarter: 2019Q1

REPORT INFORMATION
  Report Type: Spontaneous
  Country: BE (occurrence: BE)
  Receive Date: 20190204
  Receipt Date: 20190204
  Transmission Date: 20190417
  Serious: Yes (Hospitalization)
  Sender: FDA-Public Use
  Company Number: BE-PFIZER INC-K201001013

PATIENT
  Age: 13 Year
  Sex: Male
  Weight: 61 kg

DRUGS (12)
  1. OMEPRAZOLE. [Suspect]
     Active Substance: OMEPRAZOLE
     Indication: ORAL DISORDER
     Dosage: 20 MG, 1X/DAY
     Route: 048
     Dates: start: 20080307, end: 200807
  2. OMEPRAZOLE. [Suspect]
     Active Substance: OMEPRAZOLE
     Indication: OESOPHAGEAL DISORDER
  3. CYTARABINE. [Suspect]
     Active Substance: CYTARABINE
     Indication: ACUTE LYMPHOCYTIC LEUKAEMIA
     Dosage: 30 MG, SINGLE
     Route: 037
     Dates: start: 20080716, end: 20080716
  4. CYCLOPHOSPHAMIDE. [Suspect]
     Active Substance: CYCLOPHOSPHAMIDE
     Indication: ACUTE LYMPHOCYTIC LEUKAEMIA
     Dosage: 1000 MG/M2, SINGLE
     Route: 042
     Dates: start: 20080714, end: 20080714
  5. SEPTRA [Suspect]
     Active Substance: SULFAMETHOXAZOLE\TRIMETHOPRIM
     Dosage: 800 MG, 1X/DAY
     Route: 048
     Dates: start: 20080603
  6. THIOGUANINE [Concomitant]
     Active Substance: THIOGUANINE
     Indication: ACUTE LYMPHOCYTIC LEUKAEMIA
     Dosage: 60 MG/M2, 1X/DAY
     Route: 048
     Dates: start: 20080714, end: 20080728
  7. ONDANSETRON [Concomitant]
     Active Substance: ONDANSETRON
     Indication: ACUTE LYMPHOCYTIC LEUKAEMIA
     Dosage: 2X5 MG/M2, UP TO A MAX 8 MG, QD
     Dates: start: 20080714, end: 20080729
  8. METHOTREXATE SODIUM. [Suspect]
     Active Substance: METHOTREXATE SODIUM
     Indication: ACUTE LYMPHOCYTIC LEUKAEMIA
     Dosage: 12 MG, SINGLE
     Route: 037
     Dates: start: 20080716, end: 20080716
  9. CYTARABINE. [Suspect]
     Active Substance: CYTARABINE
     Dosage: 75 MG/M2, 1X/DAY
     Route: 042
     Dates: start: 20080723, end: 20080726
  10. METHYLPREDNISOLONE. [Concomitant]
     Active Substance: METHYLPREDNISOLONE
     Indication: ACUTE LYMPHOCYTIC LEUKAEMIA
     Dosage: 3 MG, SINGLE
     Route: 037
     Dates: start: 20080716, end: 20080716
  11. CYTARABINE. [Suspect]
     Active Substance: CYTARABINE
     Dosage: 75 MG/M2, 1X/DAY
     Route: 042
     Dates: start: 20080716, end: 20080719
  12. MESNA. [Concomitant]
     Active Substance: MESNA
     Dosage: 1000 MG/M2, SINGLE
     Route: 042
     Dates: start: 20080714, end: 20080714

REACTIONS (5)
  - Hemiparesis [Recovered/Resolved]
  - Facial paresis [Recovered/Resolved]
  - Swelling face [Recovered/Resolved]
  - Dysarthria [Recovered/Resolved]
  - Hypoaesthesia oral [Recovered/Resolved]

NARRATIVE: CASE EVENT DATE: 20080727
